FAERS Safety Report 8160022-4 (Version None)
Quarter: 2012Q1

REPORT INFORMATION
  Report Type: 
  Country: None (occurrence: None)
  Receive Date: 20120223
  Receipt Date: 20120221
  Transmission Date: 20120608
  Serious: Yes (Other)
  Sender: FDA-Public Use
  Company Number: JP-GLAXOSMITHKLINE-B0780773A

PATIENT
  Age: 98 Year
  Sex: Female

DRUGS (1)
  1. PAXIL [Suspect]
     Indication: ANXIETY
     Dosage: 10MG PER DAY
     Route: 048

REACTIONS (3)
  - ANXIETY [None]
  - DEPRESSED LEVEL OF CONSCIOUSNESS [None]
  - SOMNOLENCE [None]
